FAERS Safety Report 10149340 (Version 1)
Quarter: 2014Q2

REPORT INFORMATION
  Report Type: Spontaneous
  Country: US (occurrence: None)
  Receive Date: 20140430
  Receipt Date: 20140430
  Transmission Date: 20141212
  Serious: Yes (Hospitalization)
  Sender: FDA-Public Use
  Company Number: None

PATIENT
  Age: 84 Year
  Sex: Female

DRUGS (14)
  1. WARFARIN [Suspect]
     Indication: PERICARDITIS
     Route: 048
     Dates: start: 20130917, end: 20130923
  2. COLCHICINE [Concomitant]
  3. WARFARIN [Concomitant]
  4. AMLODIPINE [Concomitant]
  5. AMIODARONE [Concomitant]
  6. ASA [Concomitant]
  7. FOLIC ACID [Concomitant]
  8. LEVOTHYROXINE [Concomitant]
  9. SIMVASTATIN [Concomitant]
  10. INFLIXIMAB [Concomitant]
  11. TRAMADOL [Concomitant]
  12. VITAMIN D [Concomitant]
  13. COENZYME [Concomitant]
  14. LUTEIN [Concomitant]

REACTIONS (8)
  - Fatigue [None]
  - Dyspnoea [None]
  - Chest pain [None]
  - Pericarditis [None]
  - Bradycardia [None]
  - Pericardial effusion [None]
  - International normalised ratio increased [None]
  - Post procedural complication [None]
